FAERS Safety Report 7486515-0 (Version None)
Quarter: 2011Q2

REPORT INFORMATION
  Report Type: 
  Country: None (occurrence: None)
  Receive Date: 20110517
  Receipt Date: 20110510
  Transmission Date: 20111010
  Serious: Yes (Hospitalization)
  Sender: FDA-Public Use
  Company Number: FR-B.I. PHARMACEUTICALS,INC./RIDGEFIELD-2011-FF-00416FF

PATIENT
  Sex: Female
  Weight: 86 kg

DRUGS (5)
  1. PRADAXA [Suspect]
     Indication: KNEE ARTHROPLASTY
     Dosage: 220 MG
     Route: 048
     Dates: start: 20110412, end: 20110418
  2. VOLTAREN [Concomitant]
     Indication: POSTOPERATIVE CARE
     Dosage: 150 MG
     Route: 048
     Dates: start: 20110411, end: 20110421
  3. NEXIUM [Concomitant]
     Indication: POSTOPERATIVE CARE
     Dosage: 20 MG
     Route: 048
     Dates: start: 20110411, end: 20110420
  4. ACETAMINOPHEN [Concomitant]
     Indication: POSTOPERATIVE CARE
     Dosage: 3000 MG
     Route: 048
     Dates: start: 20110413, end: 20110421
  5. NOROXIN [Concomitant]
     Indication: URINARY TRACT INFECTION
     Dosage: 800 MG
     Route: 048
     Dates: start: 20110415, end: 20110418

REACTIONS (1)
  - PHLEBITIS [None]
